FAERS Safety Report 8111861-7 (Version None)
Quarter: 2012Q1

REPORT INFORMATION
  Report Type: 
  Country: None (occurrence: None)
  Receive Date: 20120203
  Receipt Date: 20120126
  Transmission Date: 20120608
  Serious: Yes (Hospitalization, Congenital Anomaly)
  Sender: FDA-Public Use
  Company Number: DE-PFIZER INC-2012029218

PATIENT
  Sex: Male

DRUGS (3)
  1. RAMIPRIL [Suspect]
     Indication: HYPERTENSION
     Dosage: UNK
     Route: 064
     Dates: start: 20101228, end: 20110315
  2. AVELOX [Concomitant]
     Indication: NASOPHARYNGITIS
     Dosage: UNK
     Route: 064
     Dates: start: 20110201, end: 20110228
  3. XIPAMIDE [Suspect]
     Indication: OEDEMA
     Dosage: UNK
     Route: 064
     Dates: start: 20110115, end: 20110415

REACTIONS (2)
  - MATERNAL EXPOSURE TIMING UNSPECIFIED [None]
  - FALLOT'S TETRALOGY [None]
